FAERS Safety Report 7109186-1 (Version None)
Quarter: 2010Q4

REPORT INFORMATION
  Report Type: 
  Country: None (occurrence: None)
  Receive Date: 20101117
  Receipt Date: 20101104
  Transmission Date: 20110411
  Serious: Yes (Other)
  Sender: FDA-Public Use
  Company Number: DE-ELI_LILLY_AND_COMPANY-DE201011000024

PATIENT
  Age: 48 Year
  Sex: Female

DRUGS (2)
  1. ZYPREXA [Suspect]
     Indication: SCHIZOPHRENIA
     Dosage: 20 MG, UNK
     Route: 048
     Dates: start: 20100301, end: 20101001
  2. BENPERIDOL [Concomitant]
     Indication: SCHIZOPHRENIA
     Dosage: 12 MG, UNK
     Route: 048
     Dates: start: 20100301

REACTIONS (3)
  - LABORATORY TEST ABNORMAL [None]
  - LYMPHOCYTE COUNT DECREASED [None]
  - NEUTROPHIL COUNT INCREASED [None]
